FAERS Safety Report 5035091-0 (Version None)
Quarter: 2006Q2

REPORT INFORMATION
  Report Type: 
  Country: None (occurrence: None)
  Receive Date: 20060627
  Receipt Date: 20060524
  Transmission Date: 20061013
  Serious: Yes (Hospitalization)
  Sender: FDA-Public Use
  Company Number: PHBS2006JP07906

PATIENT
  Age: 80 Year
  Sex: Male
  Weight: 62 kg

DRUGS (7)
  1. ACINON [Concomitant]
     Route: 048
  2. PERDIPINE [Concomitant]
     Route: 048
  3. MEVALOTIN [Concomitant]
     Route: 048
  4. MARZULENE [Concomitant]
     Route: 048
  5. DEPAS [Concomitant]
     Route: 048
  6. GASMOTIN [Concomitant]
     Route: 048
  7. TOFRANIL [Suspect]
     Dosage: 10 MG, BID
     Route: 048
     Dates: start: 20060107

REACTIONS (6)
  - BLOOD SODIUM DECREASED [None]
  - HEADACHE [None]
  - HYPOAESTHESIA [None]
  - HYPONATRAEMIA [None]
  - POLYDIPSIA [None]
  - THIRST [None]
